FAERS Safety Report 24820446 (Version 3)
Quarter: 2025Q1

REPORT INFORMATION
  Report Type: Report from Study
  Country: CN (occurrence: CN)
  Receive Date: 20250108
  Receipt Date: 20250214
  Transmission Date: 20250409
  Serious: Yes (Other)
  Sender: BAUSCH AND LOMB
  Company Number: CN-BAUSCH-BL-2025-000244

PATIENT
  Age: 61 Year
  Sex: Male
  Weight: 66 kg

DRUGS (7)
  1. NIFEDIPINE [Suspect]
     Active Substance: NIFEDIPINE
     Indication: Essential hypertension
     Route: 048
     Dates: start: 20241029, end: 20241229
  2. NIFEDIPINE [Suspect]
     Active Substance: NIFEDIPINE
     Dosage: QD
     Route: 048
     Dates: start: 20241230
  3. AZILSARTAN KAMEDOXOMIL [Suspect]
     Active Substance: AZILSARTAN KAMEDOXOMIL
     Indication: Essential hypertension
     Dosage: QD, 1 MONTH 2 DAYS
     Dates: start: 20241029, end: 20241130
  4. AZILSARTAN KAMEDOXOMIL [Suspect]
     Active Substance: AZILSARTAN KAMEDOXOMIL
     Dosage: QD
     Route: 048
     Dates: start: 20241201, end: 20241229
  5. AZILSARTAN KAMEDOXOMIL [Suspect]
     Active Substance: AZILSARTAN KAMEDOXOMIL
     Dosage: QD
     Route: 048
     Dates: start: 20241230
  6. ROSUVASTATIN [Concomitant]
     Active Substance: ROSUVASTATIN
     Indication: Hyperlipidaemia
     Dates: start: 20241029
  7. EZETIMIBE [Concomitant]
     Active Substance: EZETIMIBE
     Indication: Hyperlipidaemia
     Dates: start: 20241029

REACTIONS (2)
  - Overdose [Unknown]
  - Drug ineffective [Unknown]

NARRATIVE: CASE EVENT DATE: 20241201
